FAERS Safety Report 7071130-3 (Version None)
Quarter: 2010Q4

REPORT INFORMATION
  Report Type: 
  Country: None (occurrence: None)
  Receive Date: 20101029
  Receipt Date: 20101025
  Transmission Date: 20110411
  Serious: No
  Sender: FDA-Public Use
  Company Number: US-PFIZER INC-2010135977

PATIENT
  Sex: Male
  Weight: 97.506 kg

DRUGS (3)
  1. DEPO-TESTOSTERONE [Suspect]
     Indication: BLOOD TESTOSTERONE DECREASED
     Dosage: UNK
     Route: 065
     Dates: start: 20100703
  2. TESTOSTERONE CIPIONATE [Suspect]
     Indication: BLOOD TESTOSTERONE DECREASED
     Dosage: ONE INJECTION, Q 2 WEEKS
     Route: 030
     Dates: start: 20100701
  3. TESTOSTERONE CIPIONATE [Suspect]
     Dosage: ONE INJECTION, Q 2 WEEKS
     Route: 030
     Dates: start: 20100301, end: 20100601

REACTIONS (2)
  - PRURITUS [None]
  - URTICARIA [None]
